FAERS Safety Report 18097532 (Version 1)
Quarter: 2020Q3

REPORT INFORMATION
  Report Type: Report from Study
  Country: JP (occurrence: JP)
  Receive Date: 20200731
  Receipt Date: 20200731
  Transmission Date: 20201103
  Serious: Yes (Other)
  Sender: FDA-Public Use
  Company Number: JP-PFIZER INC-2020288786

PATIENT
  Age: 44 Year
  Sex: Female

DRUGS (5)
  1. BEVACIZUMAB. [Suspect]
     Active Substance: BEVACIZUMAB
     Indication: COLORECTAL CANCER STAGE IV
     Dosage: 5 MG/KG, CYCLIC (ON DAY 1)/12 CYCLES
     Route: 042
  2. FLUOROURACIL. [Suspect]
     Active Substance: FLUOROURACIL
     Indication: COLORECTAL CANCER STAGE IV
     Dosage: 2400 MG/M2, CYCLIC (CONTINUOUS 46?HOUR INFUSION)/ ON DAY 1, 12 CYCLES
     Route: 042
  3. IRINOTECAN HCL [Suspect]
     Active Substance: IRINOTECAN HYDROCHLORIDE
     Indication: COLORECTAL CANCER STAGE IV
     Dosage: 150 MG/M2, CYCLIC (OVER THE COURSE OF 1 HOUR ON DAY 1), 12 CYCLES
     Route: 042
  4. LEUCOVORIN. [Suspect]
     Active Substance: LEUCOVORIN
     Indication: COLORECTAL CANCER STAGE IV
     Dosage: 200 MG/M2, CYCLIC (INFUSED CONCOMITANTLY OVER THE COURSE OF 2 HOURS)/ 12 CYCLES
     Route: 042
  5. OXALIPLATIN. [Suspect]
     Active Substance: OXALIPLATIN
     Indication: COLORECTAL CANCER STAGE IV
     Dosage: 85 MG/M2, CYCLIC (12 CYCLES)
     Route: 042

REACTIONS (3)
  - Febrile neutropenia [Unknown]
  - Leukopenia [Unknown]
  - Neuropathy peripheral [Unknown]
